FAERS Safety Report 12056640 (Version 14)
Quarter: 2017Q2

REPORT INFORMATION
  Report Type: Report from Study
  Country: US (occurrence: US)
  Receive Date: 20160209
  Receipt Date: 20170608
  Transmission Date: 20170829
  Serious: Yes (Hospitalization)
  Sender: FDA-Public Use
  Company Number: US-ACTELION-A-US2016-129946

PATIENT
  Age: 68 Year
  Sex: Male
  Weight: 96.15 kg

DRUGS (7)
  1. VELETRI [Suspect]
     Active Substance: EPOPROSTENOL
     Dosage: 25 NG/KG, PER MIN
     Route: 042
  2. OPSUMIT [Suspect]
     Active Substance: MACITENTAN
     Indication: PULMONARY ARTERIAL HYPERTENSION
     Dosage: 10 MG, QD
     Route: 048
     Dates: start: 20141017
  3. ADEMPAS [Concomitant]
     Active Substance: RIOCIGUAT
  4. COUMADIN [Concomitant]
     Active Substance: WARFARIN SODIUM
  5. TORSEMIDE. [Concomitant]
     Active Substance: TORSEMIDE
  6. VELETRI [Suspect]
     Active Substance: EPOPROSTENOL
     Indication: PULMONARY ARTERIAL HYPERTENSION
     Dosage: 26 NG/KG, PER MIN
     Route: 042
  7. VELETRI [Suspect]
     Active Substance: EPOPROSTENOL
     Dosage: 22 NG/KG, PER MIN
     Route: 042
     Dates: start: 20131113

REACTIONS (19)
  - Fluid retention [Unknown]
  - Weight increased [Unknown]
  - Hernia [Unknown]
  - Nasal congestion [Unknown]
  - Metabolic surgery [Unknown]
  - Hernia hiatus repair [Unknown]
  - Upper respiratory tract infection [Unknown]
  - Abdominal distension [Unknown]
  - Pulmonary arterial hypertension [Unknown]
  - Oedema [Unknown]
  - Diarrhoea [Unknown]
  - Pain in jaw [Recovered/Resolved]
  - Peripheral swelling [Unknown]
  - Flushing [Unknown]
  - Cardiac failure [Unknown]
  - Decreased appetite [Unknown]
  - Cellulitis [Unknown]
  - Cough [Unknown]
  - Dyspnoea [Recovering/Resolving]

NARRATIVE: CASE EVENT DATE: 201606
